FAERS Safety Report 18040691 (Version 4)
Quarter: 2023Q1

REPORT INFORMATION
  Report Type: Spontaneous
  Country: US (occurrence: US)
  Receive Date: 20200717
  Receipt Date: 20230222
  Transmission Date: 20230418
  Serious: Yes (Death)
  Sender: FDA-Public Use
  Company Number: US-SHIONOGI, INC.-2020000402

PATIENT
  Age: 18 Year
  Sex: Female
  Weight: 77 kg

DRUGS (14)
  1. FETROJA [Suspect]
     Active Substance: CEFIDEROCOL SULFATE TOSYLATE
     Indication: Acinetobacter infection
     Dosage: 2 G, SINGLE
     Route: 042
     Dates: start: 20200708, end: 20200708
  2. FETROJA [Suspect]
     Active Substance: CEFIDEROCOL SULFATE TOSYLATE
     Indication: Pneumonia
     Dosage: 1.5 G, 12 HOUR
     Route: 042
     Dates: start: 20200709, end: 20200710
  3. FETROJA [Suspect]
     Active Substance: CEFIDEROCOL SULFATE TOSYLATE
     Indication: Haematological infection
     Dosage: 1.5 G, 12 HOUR
     Route: 042
  4. ALBUMIN HUMAN [Concomitant]
     Active Substance: ALBUMIN HUMAN
     Indication: Fluid replacement
     Dosage: 12.5 G, 6 HOUR
     Route: 042
     Dates: start: 20200613, end: 20200710
  5. ALBUTEROL SULFATE [Concomitant]
     Active Substance: ALBUTEROL SULFATE
     Indication: Dyspnoea
     Dosage: 2.5 MG Q2HRS
     Dates: start: 20200707, end: 20200710
  6. ERYTHROMYCIN [Concomitant]
     Active Substance: ERYTHROMYCIN
     Indication: Gastrooesophageal reflux disease
     Dosage: 250 MG, 8 HOUR
     Route: 042
     Dates: start: 20200630, end: 20200710
  7. FAMOTIDINE [Concomitant]
     Active Substance: FAMOTIDINE
     Indication: Prophylaxis against gastrointestinal ulcer
     Dosage: 20 MG, QD
     Route: 042
     Dates: start: 20200708, end: 20200710
  8. HEPARIN [Concomitant]
     Active Substance: HEPARIN SODIUM
     Indication: Thrombosis prophylaxis
     Dosage: 5000 IU, 12 HOUR
     Route: 058
     Dates: start: 20200706, end: 20200710
  9. LORAZEPAM [Concomitant]
     Active Substance: LORAZEPAM
     Indication: Sedation
     Dosage: 1 MG, 6 HOUR
     Route: 048
     Dates: start: 20200708, end: 20200710
  10. METOCLOPRAMIDE [Concomitant]
     Active Substance: METOCLOPRAMIDE
     Indication: Gastrooesophageal reflux disease
     Dosage: 5 MG, 6 HOUR
     Route: 042
     Dates: start: 20200708, end: 20200710
  11. VANCOMYCIN [Concomitant]
     Active Substance: VANCOMYCIN
     Indication: Sepsis
     Dosage: 750 MG, 12 HOUR
     Route: 042
     Dates: start: 20200708, end: 20200710
  12. HYDROMORPHONE [Concomitant]
     Active Substance: HYDROMORPHONE
     Indication: Analgesic therapy
     Dosage: 5 MG, 1 PER 1 HOUR
     Route: 042
     Dates: start: 20200708, end: 20200710
  13. MIDAZOLAM [Concomitant]
     Active Substance: MIDAZOLAM
     Indication: Sedation
     Dosage: 5 MG, 1 PER 1 HOUR
     Route: 042
     Dates: start: 20200708, end: 20200710
  14. NOREPINEPHRINE [Concomitant]
     Active Substance: NOREPINEPHRINE
     Indication: Hypotension
     Dosage: 3 MCG/MIN
     Route: 042
     Dates: start: 20200706, end: 20200710

REACTIONS (2)
  - Cardiac arrest [Fatal]
  - Off label use [Unknown]

NARRATIVE: CASE EVENT DATE: 20200710
